FAERS Safety Report 9354601 (Version 1)
Quarter: 2013Q2

REPORT INFORMATION
  Report Type: Report from Study
  Country: US (occurrence: US)
  Receive Date: 20130618
  Receipt Date: 20130618
  Transmission Date: 20140414
  Serious: Yes (Hospitalization)
  Sender: FDA-Public Use
  Company Number: US-US-EMD SERONO, INC.-7218031

PATIENT
  Sex: Male

DRUGS (2)
  1. REBIF [Suspect]
     Indication: MULTIPLE SCLEROSIS
     Route: 058
     Dates: start: 20100413
  2. REBIF [Suspect]
     Route: 058

REACTIONS (3)
  - Gastrointestinal infection [Unknown]
  - Blood potassium decreased [Unknown]
  - Asthenia [Not Recovered/Not Resolved]
